FAERS Safety Report 7929116-X (Version None)
Quarter: 2011Q4

REPORT INFORMATION
  Report Type: 
  Country: None (occurrence: None)
  Receive Date: 20111119
  Receipt Date: 20111109
  Transmission Date: 20120403
  Serious: Yes (Other)
  Sender: FDA-Public Use
  Company Number: DE-ASTRAZENECA-2011SE58675

PATIENT
  Sex: Male

DRUGS (2)
  1. NAROPIN [Suspect]
  2. TRIAMCINOLONE [Interacting]

REACTIONS (4)
  - DRUG INTERACTION [None]
  - EXTRASYSTOLES [None]
  - CORONARY ARTERY DISEASE [None]
  - SYNCOPE [None]
